FAERS Safety Report 21033620 (Version 1)
Quarter: 2022Q3

REPORT INFORMATION
  Report Type: Spontaneous
  Country: CA (occurrence: CA)
  Receive Date: 20220701
  Receipt Date: 20220701
  Transmission Date: 20221027
  Serious: Yes (Other)
  Sender: FDA-Public Use
  Company Number: CA-TEVA-2022-CA-2050156

PATIENT
  Age: 39 Year
  Sex: Female

DRUGS (5)
  1. DULOXETINE [Interacting]
     Active Substance: DULOXETINE
     Indication: Migraine prophylaxis
     Dosage: 30 MILLIGRAM DAILY;
     Route: 065
  2. DULOXETINE [Interacting]
     Active Substance: DULOXETINE
     Indication: Depression
  3. DULOXETINE [Interacting]
     Active Substance: DULOXETINE
     Indication: Anxiety
  4. PAROXETINE [Interacting]
     Active Substance: PAROXETINE
     Indication: Mood swings
     Dosage: 10 MILLIGRAM DAILY;
     Route: 065
  5. SUMATRIPTAN [Interacting]
     Active Substance: SUMATRIPTAN
     Indication: Migraine
     Route: 048

REACTIONS (14)
  - Agitation [Unknown]
  - Anxiety [Unknown]
  - Condition aggravated [Unknown]
  - Depressed mood [Unknown]
  - Depressive symptom [Unknown]
  - Drug-disease interaction [Unknown]
  - Dyspepsia [Unknown]
  - Headache [Unknown]
  - Hot flush [Unknown]
  - Hyperhidrosis [Unknown]
  - Insomnia [Unknown]
  - Middle insomnia [Unknown]
  - Body temperature increased [Unknown]
  - Drug ineffective [Unknown]
